FAERS Safety Report 8046741-9 (Version None)
Quarter: 2012Q1

REPORT INFORMATION
  Report Type: 
  Country: None (occurrence: None)
  Receive Date: 20120116
  Receipt Date: 20120105
  Transmission Date: 20120608
  Serious: Yes (Hospitalization)
  Sender: FDA-Public Use
  Company Number: NL-BIOGENIDEC-2012BI000454

PATIENT
  Age: 40 Year
  Sex: Female

DRUGS (2)
  1. MEDICATION (NOS) [Concomitant]
  2. AVONEX [Suspect]
     Indication: MULTIPLE SCLEROSIS
     Route: 030
     Dates: start: 20080903, end: 20111024

REACTIONS (3)
  - PANIC ATTACK [None]
  - ANXIETY [None]
  - SUICIDE ATTEMPT [None]
